FAERS Safety Report 25897754 (Version 4)
Quarter: 2025Q4

REPORT INFORMATION
  Report Type: Report from Study
  Country: US (occurrence: US)
  Receive Date: 20251008
  Receipt Date: 20251231
  Transmission Date: 20260117
  Serious: No
  Sender: PFIZER
  Company Number: US-PFIZER INC-202500198969

PATIENT
  Age: 57 Year
  Sex: Male

DRUGS (4)
  1. INLYTA [Suspect]
     Active Substance: AXITINIB
     Indication: Renal cancer
     Dosage: 5 MG
  2. INLYTA [Suspect]
     Active Substance: AXITINIB
     Dosage: 3 MG, 2X/DAY
     Route: 048
  3. XANAX [Concomitant]
     Active Substance: ALPRAZOLAM
     Dosage: 0.5 MG, 1X/DAY (AT BEDTIME AS NEEDED)
     Route: 048
  4. NITROSTAT [Concomitant]
     Active Substance: NITROGLYCERIN
     Dosage: 0.4 MG, AS NEEDED (UNDER THE TONGUE EVERY 5 MINUTES)
     Route: 060

REACTIONS (12)
  - Eye disorder [Unknown]
  - Malaise [Unknown]
  - Balance disorder [Unknown]
  - Heart rate decreased [Unknown]
  - Memory impairment [Unknown]
  - Acne [Unknown]
  - Blister [Unknown]
  - Dizziness [Unknown]
  - Nausea [Unknown]
  - Headache [Unknown]
  - Dysphonia [Unknown]
  - Pruritus [Unknown]
